FAERS Safety Report 11861736 (Version 1)
Quarter: 2015Q4

REPORT INFORMATION
  Report Type: Spontaneous
  Country: US (occurrence: US)
  Receive Date: 20151222
  Receipt Date: 20151222
  Transmission Date: 20160305
  Serious: Yes (Other)
  Sender: FDA-Public Use
  Company Number: PHHY2015US164058

PATIENT
  Age: 52 Year
  Sex: Male

DRUGS (3)
  1. ASPIRIN. [Concomitant]
     Active Substance: ASPIRIN
     Indication: VASOSPASM
     Dosage: 325 MG, UNK
     Route: 065
  2. VERAPAMIL [Suspect]
     Active Substance: VERAPAMIL HYDROCHLORIDE
     Indication: CEREBRAL VASOCONSTRICTION
     Dosage: 10 MG, UNK
     Route: 013
  3. NIMODIPINE. [Concomitant]
     Active Substance: NIMODIPINE
     Indication: VASOSPASM
     Route: 065

REACTIONS (2)
  - Hernia [Unknown]
  - Monoplegia [Unknown]
